FAERS Safety Report 16333676 (Version 4)
Quarter: 2019Q3

REPORT INFORMATION
  Report Type: Spontaneous
  Country: US (occurrence: US)
  Receive Date: 20190520
  Receipt Date: 20190814
  Transmission Date: 20191004
  Serious: Yes (Other)
  Sender: FDA-Public Use
  Company Number: US-AMGEN-USASP2019078474

PATIENT
  Age: 37 Year
  Sex: Female
  Weight: 63.5 kg

DRUGS (13)
  1. TROKENDI [Concomitant]
     Active Substance: TOPIRAMATE
     Indication: HEADACHE
     Dosage: 200 MILLIGRAM, QD (ONCE A DAY/HS)
     Route: 048
  2. LINZESS [Concomitant]
     Active Substance: LINACLOTIDE
     Dosage: 145 MICROGRAM, ONCE A DAY, PRN
     Route: 048
  3. XANAX [Concomitant]
     Active Substance: ALPRAZOLAM
     Dosage: 0.25 MILLIGRAM, TWICE A DAY/PRN
     Route: 048
  4. MAGNESIUM [Concomitant]
     Active Substance: MAGNESIUM
     Dosage: 800 MILLIGRAM, QD WITH MEAL
     Route: 048
  5. MAXALT [Concomitant]
     Active Substance: RIZATRIPTAN BENZOATE
     Dosage: AS NECESSARY TWICE A DAY
  6. BOTOX [Concomitant]
     Active Substance: ONABOTULINUMTOXINA
  7. RIZATRIPTAN BENZOATE. [Concomitant]
     Active Substance: RIZATRIPTAN BENZOATE
     Dosage: 10 MILLIGRAM, AS NECESSARY (MAY REPEAT AFTER TWO HOURS)
     Route: 048
  8. AIMOVIG [Suspect]
     Active Substance: ERENUMAB-AOOE
     Indication: MIGRAINE
     Dosage: 140 MILLIGRAM, QMO
     Route: 065
     Dates: start: 20190221, end: 20190515
  9. ZIPSOR [Concomitant]
     Active Substance: DICLOFENAC POTASSIUM
     Dosage: 25 MILLIGRAM (1 CAPSULE WITH FOOD OR MILK AS NEEDED ORALLY2 TWICE PRN)
  10. CAMBIA [Concomitant]
     Active Substance: DICLOFENAC POTASSIUM
     Dosage: 50 MILLIGRAM, BID PRN
     Route: 048
  11. METOCLOPRAMIDE HCL [Concomitant]
     Active Substance: METOCLOPRAMIDE HYDROCHLORIDE
     Dosage: 10 MILLIGRAM, BID PRN
     Route: 048
  12. COQ10 [TOCOPHERYL ACETATE;UBIDECARENONE] [Concomitant]
     Dosage: 200 MILLIGRAM, QD WITH MEAL
     Route: 048
  13. SUMAVEL [Concomitant]
     Active Substance: SUMATRIPTAN SUCCINATE
     Dosage: SOULTION JET INJECTOR 0.5ML TWICE A DAY AS NEEDED (PRN)
     Route: 058

REACTIONS (11)
  - Loss of consciousness [Recovered/Resolved]
  - Dizziness [Recovered/Resolved]
  - Alopecia [Recovering/Resolving]
  - Confusional state [Recovered/Resolved]
  - Constipation [Recovered/Resolved]
  - Nausea [Unknown]
  - Vision blurred [Recovered/Resolved]
  - Blindness transient [Recovered/Resolved]
  - Papilloedema [Recovered/Resolved]
  - Insomnia [Unknown]
  - Migraine [Unknown]

NARRATIVE: CASE EVENT DATE: 2019
